FAERS Safety Report 7522668-3 (Version None)
Quarter: 2011Q2

REPORT INFORMATION
  Report Type: 
  Country: None (occurrence: None)
  Receive Date: 20110603
  Receipt Date: 20110524
  Transmission Date: 20111010
  Serious: Yes (Death)
  Sender: FDA-Public Use
  Company Number: IL-ACTELION-A-CH2011-49253

PATIENT
  Age: 45 Year
  Sex: Male

DRUGS (3)
  1. VENTAVIS [Concomitant]
     Indication: PULMONARY ARTERIAL HYPERTENSION
  2. SILDENAFIL CITRATE [Concomitant]
  3. TRACLEER [Suspect]
     Indication: PULMONARY ARTERIAL HYPERTENSION
     Dosage: UNK
     Route: 048
     Dates: start: 20060101

REACTIONS (1)
  - COMPLICATIONS OF TRANSPLANTED LUNG [None]
